FAERS Safety Report 9965977 (Version 1)
Quarter: 2014Q1

REPORT INFORMATION
  Report Type: Report from Study
  Country: US (occurrence: US)
  Receive Date: 20140305
  Receipt Date: 20140305
  Transmission Date: 20141002
  Serious: No
  Sender: FDA-Public Use
  Company Number: US-ABBVIE-13P-163-1123441-00

PATIENT
  Age: 45 Year
  Sex: Female

DRUGS (7)
  1. HUMIRA [Suspect]
     Indication: RHEUMATOID ARTHRITIS
     Dates: start: 201304, end: 201305
  2. HUMIRA [Suspect]
     Dates: start: 201305
  3. PREDNISONE [Concomitant]
     Indication: RHEUMATOID ARTHRITIS
     Dosage: 10 MG TO 20 MG DOSE VARIES
     Route: 048
  4. GLA [Concomitant]
     Indication: INFLAMMATION
     Dosage: DAILY
     Route: 048
  5. VITAMIN E [Concomitant]
     Indication: INFLAMMATION
  6. TURMERIC [Concomitant]
     Indication: INFLAMMATION
     Route: 048
  7. CINNAMON [Concomitant]
     Indication: INFLAMMATION
     Dosage: DAILY

REACTIONS (6)
  - Hepatic enzyme increased [Not Recovered/Not Resolved]
  - Local swelling [Unknown]
  - Erythema [Unknown]
  - Device malfunction [Unknown]
  - Wrong technique in drug usage process [Unknown]
  - Unevaluable event [Unknown]
